FAERS Safety Report 4368347-5 (Version None)
Quarter: 2004Q2

REPORT INFORMATION
  Report Type: 
  Country: None (occurrence: None)
  Receive Date: 20040525
  Receipt Date: 20040512
  Transmission Date: 20050107
  Serious: Yes (Other)
  Sender: FDA-Public Use
  Company Number: 2004210393JP

PATIENT
  Age: 76 Year
  Sex: Male
  Weight: 56 kg

DRUGS (3)
  1. FRAGMIN [Suspect]
     Indication: HAEMODIALYSIS
     Dosage: IV
     Route: 042
     Dates: start: 20040317
  2. FUTHAN(NAFAMOSTAT MESILATE) [Concomitant]
  3. TAKEPRON [Concomitant]

REACTIONS (4)
  - EOSINOPHIL COUNT INCREASED [None]
  - PLATELET COUNT DECREASED [None]
  - VENTRICULAR FIBRILLATION [None]
  - WHITE BLOOD CELL COUNT DECREASED [None]
